FAERS Safety Report 22009306 (Version 1)
Quarter: 2023Q1

REPORT INFORMATION
  Report Type: Spontaneous
  Country: US (occurrence: US)
  Receive Date: 20230220
  Receipt Date: 20230220
  Transmission Date: 20230418
  Serious: No
  Sender: FDA-Public Use
  Company Number: US-PADAGIS-2023PAD00103

PATIENT

DRUGS (1)
  1. ESTRADIOL VAGINAL [Suspect]
     Active Substance: ESTRADIOL
     Indication: Drug tolerance
     Dosage: UNK
     Route: 065
     Dates: start: 20230125

REACTIONS (4)
  - Diarrhoea [Not Recovered/Not Resolved]
  - Nausea [Not Recovered/Not Resolved]
  - Product dose omission issue [Unknown]
  - Product prescribing issue [Unknown]
